FAERS Safety Report 4382904-1 (Version None)
Quarter: 2004Q2

REPORT INFORMATION
  Report Type: 
  Country: None (occurrence: None)
  Receive Date: 20040617
  Receipt Date: 20040608
  Transmission Date: 20050107
  Serious: Yes (Other)
  Sender: FDA-Public Use
  Company Number: SUSI-2004-00282

PATIENT
  Age: 11 Year
  Sex: Male

DRUGS (1)
  1. ADDERALL 30 [Suspect]

REACTIONS (4)
  - AGGRESSION [None]
  - ANGER [None]
  - EDUCATIONAL PROBLEM [None]
  - OBSESSIVE THOUGHTS [None]
